FAERS Safety Report 21555022 (Version 1)
Quarter: 2022Q4

REPORT INFORMATION
  Report Type: Spontaneous
  Country: US (occurrence: US)
  Receive Date: 20221104
  Receipt Date: 20221104
  Transmission Date: 20230113
  Serious: Yes (Death)
  Sender: FDA-Public Use
  Company Number: US-PFIZER INC-PV202200095411

PATIENT
  Age: 30 Year
  Sex: Female

DRUGS (9)
  1. CLINDAMYCIN PHOSPHATE [Suspect]
     Active Substance: CLINDAMYCIN PHOSPHATE
     Indication: Clostridial infection
  2. DOXYCYCLINE HYCLATE [Suspect]
     Active Substance: DOXYCYCLINE HYCLATE
     Indication: Clostridial infection
  3. GENTAMICIN SULFATE [Suspect]
     Active Substance: GENTAMICIN SULFATE
     Indication: Clostridial infection
  4. VANCOMYCIN HYDROCHLORIDE [Suspect]
     Active Substance: VANCOMYCIN HYDROCHLORIDE
     Indication: Clostridial infection
     Route: 042
  5. ZOSYN [Suspect]
     Active Substance: PIPERACILLIN SODIUM\TAZOBACTAM SODIUM
     Indication: Clostridial infection
     Dosage: UNK
     Route: 042
  6. MEROPENEM [Suspect]
     Active Substance: MEROPENEM
     Indication: Clostridial infection
  7. HYDROXYUREA [Suspect]
     Active Substance: HYDROXYUREA
     Indication: Clostridial infection
  8. PRIVIGEN [Suspect]
     Active Substance: HUMAN IMMUNOGLOBULIN G
     Indication: Clostridial infection
  9. METHYLENE BLUE [Suspect]
     Active Substance: METHYLENE BLUE
     Indication: Clostridial infection
     Route: 042

REACTIONS (1)
  - Drug ineffective [Fatal]
